FAERS Safety Report 5753475-X (Version None)
Quarter: 2008Q2

REPORT INFORMATION
  Report Type: 
  Country: None (occurrence: None)
  Receive Date: 20080530
  Receipt Date: 20080521
  Transmission Date: 20081010
  Serious: Yes (Hospitalization, Other)
  Sender: FDA-Public Use
  Company Number: NL-JNJFOC-20070301033

PATIENT
  Sex: Female
  Weight: 86 kg

DRUGS (6)
  1. REMICADE [Suspect]
     Route: 042
  2. REMICADE [Suspect]
     Route: 042
  3. REMICADE [Suspect]
     Indication: CROHN'S DISEASE
     Route: 042
  4. AZATHIOPRINE [Concomitant]
     Indication: CROHN'S DISEASE
  5. VITAMIN B-12 [Concomitant]
     Indication: VITAMIN B12 DEFICIENCY
  6. ZELITREX [Concomitant]
     Indication: ORAL HERPES

REACTIONS (3)
  - CHOLESTASIS OF PREGNANCY [None]
  - DRUG EXPOSURE DURING PREGNANCY [None]
  - PREMATURE LABOUR [None]
